FAERS Safety Report 24670222 (Version 3)
Quarter: 2024Q4

REPORT INFORMATION
  Report Type: Spontaneous
  Country: AU (occurrence: AU)
  Receive Date: 20241127
  Receipt Date: 20241213
  Transmission Date: 20250114
  Serious: No
  Sender: PFIZER
  Company Number: AU-PFIZER INC-PV202400152031

PATIENT

DRUGS (3)
  1. MAGNESIUM SULFATE [Suspect]
     Active Substance: MAGNESIUM SULFATE
     Dosage: 10 MMOL
     Route: 042
  2. SODIUM CHLORIDE [Concomitant]
     Active Substance: SODIUM CHLORIDE
     Indication: Vehicle solution use
     Dosage: 100 ML
     Route: 042
  3. FLUCLOX [FLUCLOXACILLIN SODIUM] [Concomitant]
     Dosage: UNK
     Route: 042

REACTIONS (2)
  - Product deposit [Unknown]
  - Product with quality issue administered [Unknown]
